FAERS Safety Report 12673875 (Version 1)
Quarter: 2016Q3

REPORT INFORMATION
  Report Type: Spontaneous
  Country: CH (occurrence: DE)
  Receive Date: 20160822
  Receipt Date: 20160822
  Transmission Date: 20161109
  Serious: Yes (Hospitalization)
  Sender: FDA-Public Use
  Company Number: CH-LPDUSPRD-20160721

PATIENT
  Age: 17 Year
  Sex: Male

DRUGS (6)
  1. UNIZINK [Concomitant]
     Active Substance: AVOBENZONE\HOMOSALATE\OCTISALATE
  2. CALCIUM VERLA DRG [Concomitant]
  3. URSOFALK [Concomitant]
     Active Substance: URSODIOL
  4. FERINJECT [Suspect]
     Active Substance: FERRIC CARBOXYMALTOSE
     Dosage: UNKNOWN
     Route: 041
     Dates: start: 20160628, end: 20160628
  5. AZULFIDINE [Concomitant]
     Active Substance: SULFASALAZINE
  6. VIGANTOLETTE [Concomitant]

REACTIONS (1)
  - Gastroenteritis adenovirus [Recovered/Resolved]

NARRATIVE: CASE EVENT DATE: 20160628
